FAERS Safety Report 4349817-2 (Version None)
Quarter: 2004Q2

REPORT INFORMATION
  Report Type: 
  Country: None (occurrence: None)
  Receive Date: 20040426
  Receipt Date: 20040402
  Transmission Date: 20050107
  Serious: Yes (Hospitalization, Other)
  Sender: FDA-Public Use
  Company Number: KII-1998-0007200

PATIENT
  Age: 87 Year
  Sex: Female

DRUGS (3)
  1. MS CONTIN [Suspect]
     Dosage: 15 MG, Q12H
  2. PERCOCET [Suspect]
  3. DURAGESIC [Suspect]
     Dosage: 25 MCG/HR

REACTIONS (4)
  - DRUG DEPENDENCE [None]
  - DYSPNOEA [None]
  - RESPIRATORY FAILURE [None]
  - SOMNOLENCE [None]
